FAERS Safety Report 15991957 (Version 2)
Quarter: 2019Q2

REPORT INFORMATION
  Report Type: Spontaneous
  Country: US (occurrence: US)
  Receive Date: 20190221
  Receipt Date: 20190606
  Transmission Date: 20190711
  Serious: No
  Sender: FDA-Public Use
  Company Number: US-VIFOR (INTERNATIONAL) INC.-VIT-2019-01221

PATIENT
  Age: 24 Year
  Sex: Male
  Weight: 78 kg

DRUGS (4)
  1. HECTOROL [Concomitant]
     Active Substance: DOXERCALCIFEROL
     Route: 040
     Dates: start: 20180724
  2. MIRCERA [Suspect]
     Active Substance: METHOXY POLYETHYLENE GLYCOL-EPOETIN BETA
     Indication: PRODUCT USED FOR UNKNOWN INDICATION
     Route: 040
  3. SENSIPAR [Concomitant]
     Active Substance: CINACALCET HYDROCHLORIDE
     Route: 048
     Dates: start: 20180724
  4. MIRCERA [Suspect]
     Active Substance: METHOXY POLYETHYLENE GLYCOL-EPOETIN BETA
     Dates: start: 20180724, end: 20180724

REACTIONS (5)
  - Dyspnoea [Unknown]
  - Chest pain [Recovered/Resolved]
  - Hypoacusis [Unknown]
  - Visual impairment [Unknown]
  - Vomiting [Unknown]

NARRATIVE: CASE EVENT DATE: 20171121
